FAERS Safety Report 5557222-6 (Version None)
Quarter: 2007Q4

REPORT INFORMATION
  Report Type: 
  Country: None (occurrence: None)
  Receive Date: 20071211
  Receipt Date: 20071126
  Transmission Date: 20080405
  Serious: Yes (Hospitalization)
  Sender: FDA-Public Use
  Company Number: DSA_30950_2007

PATIENT
  Sex: Female

DRUGS (6)
  1. LORAZEPAM [Suspect]
     Dosage: 5 MG 1X .ORAL
     Route: 048
     Dates: start: 20071126, end: 20071126
  2. ACETYLSALICYLSYRE (ACETYLSALICYLSYRE ACETYLSALICYLIC ACID) 500 MG [Suspect]
     Dosage: 15 G 1X . ORAL
     Route: 048
     Dates: start: 20071126, end: 20071126
  3. CIPRALEX /01588501/ (CIPRALEX - ESCITALOPRAM) [Suspect]
     Dosage: 6 DF 1X   ORAL
     Route: 048
     Dates: start: 20071126, end: 20071126
  4. ACETAMINOPHEN [Suspect]
     Dosage: ORAL
     Route: 048
     Dates: start: 20071126, end: 20071126
  5. REMERGIL (REMERGIL- MIRTAZAPINE) 30 MG (NOT SPECIRIE) [Suspect]
     Dosage: 1050 MG 1X . ORAL
     Route: 048
     Dates: start: 20071126, end: 20071126
  6. SEROQUEL [Suspect]
     Dosage: 20 G 1X . ORAL
     Route: 048
     Dates: start: 20071126, end: 20071126

REACTIONS (3)
  - MULTIPLE DRUG OVERDOSE INTENTIONAL [None]
  - SUICIDE ATTEMPT [None]
  - TACHYCARDIA [None]
